FAERS Safety Report 9414633 (Version 1)
Quarter: 2013Q3

REPORT INFORMATION
  Report Type: Spontaneous
  Country: US (occurrence: None)
  Receive Date: 20130717
  Receipt Date: 20130717
  Transmission Date: 20140515
  Serious: Yes (Other)
  Sender: FDA-Public Use
  Company Number: 130223

PATIENT
  Age: 63 Year
  Sex: Female
  Weight: 77.11 kg

DRUGS (1)
  1. SUPREP BOWEL PREP KIT [Suspect]
     Indication: COLONOSCOPY
     Dosage: 2 X6 6 PZ. BOTTLE/1X/PO
     Route: 048
     Dates: start: 20130710, end: 20130711

REACTIONS (7)
  - Product taste abnormal [None]
  - Chills [None]
  - Headache [None]
  - Blood pressure decreased [None]
  - Body temperature decreased [None]
  - Nausea [None]
  - Pain [None]
